FAERS Safety Report 4732619-2 (Version None)
Quarter: 2005Q3

REPORT INFORMATION
  Report Type: 
  Country: None (occurrence: None)
  Receive Date: 20050801
  Receipt Date: 20050720
  Transmission Date: 20060218
  Serious: Yes (Other)
  Sender: FDA-Public Use
  Company Number: 2005104975

PATIENT
  Sex: Male

DRUGS (2)
  1. VFEND [Suspect]
     Indication: ILL-DEFINED DISORDER
  2. CEFEPIME (CEFEPIME) [Suspect]
     Indication: ILL-DEFINED DISORDER

REACTIONS (2)
  - ANAPHYLACTOID REACTION [None]
  - CIRCULATORY COLLAPSE [None]
